FAERS Safety Report 25181730 (Version 4)
Quarter: 2025Q3

REPORT INFORMATION
  Report Type: Spontaneous
  Country: EU (occurrence: EU)
  Receive Date: 20250410
  Receipt Date: 20250814
  Transmission Date: 20251021
  Serious: Yes (Other)
  Sender: NOVARTIS
  Company Number: EU-002147023-NVSC2025FR026185

PATIENT
  Sex: Female

DRUGS (1)
  1. BEOVU [Suspect]
     Active Substance: BROLUCIZUMAB-DBLL
     Indication: Product used for unknown indication
     Route: 065
     Dates: end: 20250109

REACTIONS (10)
  - Vitritis [Unknown]
  - Blindness unilateral [Unknown]
  - Retinal vascular occlusion [Unknown]
  - Retinal ischaemia [Unknown]
  - Retinal occlusive vasculitis [Recovered/Resolved]
  - Visual acuity reduced [Recovered/Resolved with Sequelae]
  - Uveitis [Unknown]
  - Macular oedema [Recovered/Resolved with Sequelae]
  - Anterior chamber flare [Unknown]
  - Epiretinal membrane [Recovered/Resolved with Sequelae]

NARRATIVE: CASE EVENT DATE: 20250221
